FAERS Safety Report 8215878-3 (Version None)
Quarter: 2012Q1

REPORT INFORMATION
  Report Type: 
  Country: None (occurrence: None)
  Receive Date: 20120316
  Receipt Date: 20120309
  Transmission Date: 20120608
  Serious: Yes (Hospitalization)
  Sender: FDA-Public Use
  Company Number: US-UCBSA-051469

PATIENT
  Age: 16 Year
  Sex: Male

DRUGS (5)
  1. LAMICTAL [Suspect]
     Dosage: UNKNOWN DOSE
     Dates: start: 20111001
  2. LAMOTRIGINE [Suspect]
     Indication: CONVULSION
     Dosage: 100 MG VARIABLE DOSE
     Route: 048
  3. TEGRETOL [Concomitant]
     Dosage: UNKNOWN DOSE
     Dates: start: 20111201
  4. VIMPAT [Suspect]
     Dosage: 2 IN MORNING AND 1 IN EVENING
     Dates: end: 20120106
  5. LAMICTAL [Suspect]
     Dosage: 3 YEARS

REACTIONS (6)
  - FATIGUE [None]
  - MALAISE [None]
  - DIZZINESS [None]
  - LEARNING DISORDER [None]
  - CONVULSION [None]
  - VOMITING [None]
